FAERS Safety Report 8344260-3 (Version None)
Quarter: 2012Q2

REPORT INFORMATION
  Report Type: 
  Country: None (occurrence: None)
  Receive Date: 20120508
  Receipt Date: 20090413
  Transmission Date: 20120825
  Serious: No
  Sender: FDA-Public Use
  Company Number: US-TEVA-US024447

PATIENT
  Sex: Male
  Weight: 101.24 kg

DRUGS (2)
  1. TREANDA [Suspect]
     Indication: CHRONIC LYMPHOCYTIC LEUKAEMIA
     Route: 042
     Dates: start: 20080617, end: 20081125
  2. ZOFRAN [Concomitant]
     Dates: start: 20080617, end: 20081125

REACTIONS (3)
  - CRYPTOCOCCOSIS [None]
  - PERICARDIAL EFFUSION [None]
  - RASH [None]
